FAERS Safety Report 8849986 (Version 1)
Quarter: 2012Q4

REPORT INFORMATION
  Report Type: 
  Country: DE (occurrence: DE)
  Receive Date: 20121019
  Receipt Date: 20121019
  Transmission Date: 20130627
  Serious: Yes (Congenital Anomaly, Other)
  Sender: FDA-Public Use
  Company Number: DE-009507513-1210DEU008462

PATIENT

DRUGS (3)
  1. SINGULAIR 10 MG FILMTABLETTEN [Suspect]
     Indication: ASTHMA
     Dosage: 1 DF, qd
     Route: 064
     Dates: start: 2009
  2. ATMADISC [Concomitant]
     Indication: ASTHMA
     Dosage: UNK
     Dates: end: 201208
  3. L-THYROXIN [Concomitant]

REACTIONS (3)
  - Foetal malformation [Unknown]
  - Foetal growth restriction [Unknown]
  - Foetal exposure during pregnancy [Recovered/Resolved]
